FAERS Safety Report 20739658 (Version 2)
Quarter: 2022Q2

REPORT INFORMATION
  Report Type: Report from Study
  Country: ES (occurrence: ES)
  Receive Date: 20220422
  Receipt Date: 20220513
  Transmission Date: 20220720
  Serious: Yes (Hospitalization)
  Sender: FDA-Public Use
  Company Number: ES-ROCHE-3062793

PATIENT
  Age: 78 Year
  Sex: Male

DRUGS (18)
  1. CARBOPLATIN [Suspect]
     Active Substance: CARBOPLATIN
     Indication: Small cell lung cancer extensive stage
     Dosage: 320 MG
     Route: 065
     Dates: start: 20211005
  2. ETOPOSIDE [Suspect]
     Active Substance: ETOPOSIDE
     Indication: Small cell lung cancer extensive stage
     Dosage: 160 MG
     Route: 065
     Dates: start: 20211005
  3. ATEZOLIZUMAB [Suspect]
     Active Substance: ATEZOLIZUMAB
     Indication: Small cell lung cancer extensive stage
     Dosage: 1200 MG, EVERY 3 WEEKS
     Route: 042
     Dates: start: 20211005
  4. FOLIC ACID [Concomitant]
     Active Substance: FOLIC ACID
     Indication: Prophylaxis
     Dosage: UNK UNK, 1X/DAY
     Dates: start: 20220205
  5. FENTANYL [Concomitant]
     Active Substance: FENTANYL
     Dates: start: 20220208
  6. ACENOCOUMAROL [Concomitant]
     Active Substance: ACENOCOUMAROL
     Indication: Prophylaxis
     Dosage: UNK UNK, 1X/DAY
     Dates: start: 20220214
  7. SIMVASTATIN [Concomitant]
     Active Substance: SIMVASTATIN
     Dosage: UNK UNK, 1X/DAY
     Dates: start: 20220214
  8. IBUPROFEN [Concomitant]
     Active Substance: IBUPROFEN
     Dosage: UNK UNK, 1X/DAY
     Dates: start: 20220214
  9. DIAZEPAM [Concomitant]
     Active Substance: DIAZEPAM
     Indication: Prophylaxis
     Dosage: UNK UNK, 1X/DAY
     Dates: start: 20220214
  10. FINASTERIDE [Concomitant]
     Active Substance: FINASTERIDE
  11. MORPHINE [Concomitant]
     Active Substance: MORPHINE
     Dosage: UNK UNK, 1X/DAY
     Dates: start: 20220214
  12. ACETAMINOPHEN [Concomitant]
     Active Substance: ACETAMINOPHEN
     Dates: start: 20220214
  13. CELECOXIB [Concomitant]
     Active Substance: CELECOXIB
     Dates: start: 20220214
  14. BUDESONIDE [Concomitant]
     Active Substance: BUDESONIDE
     Dosage: UNK, 1X/DAY
  15. OMEPRAZOLE [Concomitant]
     Active Substance: OMEPRAZOLE
  16. IPRATROPIUM [Concomitant]
     Active Substance: IPRATROPIUM
  17. OLODATEROL [Concomitant]
     Active Substance: OLODATEROL
  18. BEMIPARIN [Concomitant]
     Active Substance: BEMIPARIN

REACTIONS (2)
  - Colitis [Recovered/Resolved]
  - Diarrhoea [Recovered/Resolved]

NARRATIVE: CASE EVENT DATE: 20220322
